FAERS Safety Report 24884277 (Version 4)
Quarter: 2025Q3

REPORT INFORMATION
  Report Type: Report from Study
  Country: EU (occurrence: EU)
  Receive Date: 20250124
  Receipt Date: 20250902
  Transmission Date: 20251020
  Serious: Yes (Hospitalization)
  Sender: MYLAN
  Company Number: EU-SA-2025SA008696

PATIENT
  Age: 76 Year
  Sex: Male
  Weight: 59.6 kg

DRUGS (160)
  1. DEXAMETHASONE [Suspect]
     Active Substance: DEXAMETHASONE
     Indication: Plasma cell myeloma refractory
     Dosage: 40 MILLIGRAM, QW
     Route: 065
     Dates: start: 20240423, end: 20240514
  2. DEXAMETHASONE [Suspect]
     Active Substance: DEXAMETHASONE
     Dosage: 40 MILLIGRAM, QW
     Dates: start: 20240423, end: 20240514
  3. DEXAMETHASONE [Suspect]
     Active Substance: DEXAMETHASONE
     Dosage: 40 MILLIGRAM, QW
     Dates: start: 20240423, end: 20240514
  4. DEXAMETHASONE [Suspect]
     Active Substance: DEXAMETHASONE
     Dosage: 40 MILLIGRAM, QW
     Route: 065
     Dates: start: 20240423, end: 20240514
  5. DEXAMETHASONE [Suspect]
     Active Substance: DEXAMETHASONE
     Dosage: 40 MILLIGRAM, QW
     Route: 065
     Dates: start: 20240521, end: 20240611
  6. DEXAMETHASONE [Suspect]
     Active Substance: DEXAMETHASONE
     Dosage: 40 MILLIGRAM, QW
     Route: 065
     Dates: start: 20240521, end: 20240611
  7. DEXAMETHASONE [Suspect]
     Active Substance: DEXAMETHASONE
     Dosage: 40 MILLIGRAM, QW
     Dates: start: 20240521, end: 20240611
  8. DEXAMETHASONE [Suspect]
     Active Substance: DEXAMETHASONE
     Dosage: 40 MILLIGRAM, QW
     Dates: start: 20240521, end: 20240611
  9. DEXAMETHASONE [Suspect]
     Active Substance: DEXAMETHASONE
     Dosage: 40 MILLIGRAM, QW
     Dates: start: 20240618, end: 20240702
  10. DEXAMETHASONE [Suspect]
     Active Substance: DEXAMETHASONE
     Dosage: 40 MILLIGRAM, QW
     Route: 065
     Dates: start: 20240618, end: 20240702
  11. DEXAMETHASONE [Suspect]
     Active Substance: DEXAMETHASONE
     Dosage: 40 MILLIGRAM, QW
     Route: 065
     Dates: start: 20240618, end: 20240702
  12. DEXAMETHASONE [Suspect]
     Active Substance: DEXAMETHASONE
     Dosage: 40 MILLIGRAM, QW
     Dates: start: 20240618, end: 20240702
  13. DEXAMETHASONE [Suspect]
     Active Substance: DEXAMETHASONE
     Dosage: 40 MILLIGRAM, QW
     Route: 065
     Dates: start: 20240716, end: 20240730
  14. DEXAMETHASONE [Suspect]
     Active Substance: DEXAMETHASONE
     Dosage: 40 MILLIGRAM, QW
     Route: 065
     Dates: start: 20240716, end: 20240730
  15. DEXAMETHASONE [Suspect]
     Active Substance: DEXAMETHASONE
     Dosage: 40 MILLIGRAM, QW
     Dates: start: 20240716, end: 20240730
  16. DEXAMETHASONE [Suspect]
     Active Substance: DEXAMETHASONE
     Dosage: 40 MILLIGRAM, QW
     Dates: start: 20240716, end: 20240730
  17. DEXAMETHASONE [Suspect]
     Active Substance: DEXAMETHASONE
     Dosage: 40 MILLIGRAM, QW
     Route: 065
     Dates: start: 20240813, end: 20240827
  18. DEXAMETHASONE [Suspect]
     Active Substance: DEXAMETHASONE
     Dosage: 40 MILLIGRAM, QW
     Route: 065
     Dates: start: 20240813, end: 20240827
  19. DEXAMETHASONE [Suspect]
     Active Substance: DEXAMETHASONE
     Dosage: 40 MILLIGRAM, QW
     Dates: start: 20240813, end: 20240827
  20. DEXAMETHASONE [Suspect]
     Active Substance: DEXAMETHASONE
     Dosage: 40 MILLIGRAM, QW
     Dates: start: 20240813, end: 20240827
  21. DEXAMETHASONE [Suspect]
     Active Substance: DEXAMETHASONE
     Dosage: 40 MILLIGRAM, QW
     Dates: start: 20240910, end: 20240924
  22. DEXAMETHASONE [Suspect]
     Active Substance: DEXAMETHASONE
     Dosage: 40 MILLIGRAM, QW
     Dates: start: 20240910, end: 20240924
  23. DEXAMETHASONE [Suspect]
     Active Substance: DEXAMETHASONE
     Dosage: 40 MILLIGRAM, QW
     Route: 065
     Dates: start: 20240910, end: 20240924
  24. DEXAMETHASONE [Suspect]
     Active Substance: DEXAMETHASONE
     Dosage: 40 MILLIGRAM, QW
     Route: 065
     Dates: start: 20240910, end: 20240924
  25. DEXAMETHASONE [Suspect]
     Active Substance: DEXAMETHASONE
     Dosage: 40 MILLIGRAM, QW
     Route: 065
     Dates: start: 20241008, end: 20241022
  26. DEXAMETHASONE [Suspect]
     Active Substance: DEXAMETHASONE
     Dosage: 40 MILLIGRAM, QW
     Route: 065
     Dates: start: 20241008, end: 20241022
  27. DEXAMETHASONE [Suspect]
     Active Substance: DEXAMETHASONE
     Dosage: 40 MILLIGRAM, QW
     Dates: start: 20241008, end: 20241022
  28. DEXAMETHASONE [Suspect]
     Active Substance: DEXAMETHASONE
     Dosage: 40 MILLIGRAM, QW
     Dates: start: 20241008, end: 20241022
  29. DEXAMETHASONE [Suspect]
     Active Substance: DEXAMETHASONE
     Dosage: 40 MILLIGRAM, QW
     Route: 065
     Dates: start: 20241105, end: 20241119
  30. DEXAMETHASONE [Suspect]
     Active Substance: DEXAMETHASONE
     Dosage: 40 MILLIGRAM, QW
     Route: 065
     Dates: start: 20241105, end: 20241119
  31. DEXAMETHASONE [Suspect]
     Active Substance: DEXAMETHASONE
     Dosage: 40 MILLIGRAM, QW
     Dates: start: 20241105, end: 20241119
  32. DEXAMETHASONE [Suspect]
     Active Substance: DEXAMETHASONE
     Dosage: 40 MILLIGRAM, QW
     Dates: start: 20241105, end: 20241119
  33. DEXAMETHASONE [Suspect]
     Active Substance: DEXAMETHASONE
     Dosage: 40 MILLIGRAM, QW
     Dates: start: 20241203, end: 20241217
  34. DEXAMETHASONE [Suspect]
     Active Substance: DEXAMETHASONE
     Dosage: 40 MILLIGRAM, QW
     Dates: start: 20241203, end: 20241217
  35. DEXAMETHASONE [Suspect]
     Active Substance: DEXAMETHASONE
     Dosage: 40 MILLIGRAM, QW
     Route: 065
     Dates: start: 20241203, end: 20241217
  36. DEXAMETHASONE [Suspect]
     Active Substance: DEXAMETHASONE
     Dosage: 40 MILLIGRAM, QW
     Route: 065
     Dates: start: 20241203, end: 20241217
  37. ISATUXIMAB [Suspect]
     Active Substance: ISATUXIMAB
     Indication: Plasma cell myeloma refractory
     Dosage: 540 MILLIGRAM, QW
     Route: 065
     Dates: start: 20240423, end: 20240514
  38. ISATUXIMAB [Suspect]
     Active Substance: ISATUXIMAB
     Dosage: 540 MILLIGRAM, QW
     Dates: start: 20240423, end: 20240514
  39. ISATUXIMAB [Suspect]
     Active Substance: ISATUXIMAB
     Dosage: 540 MILLIGRAM, QW
     Dates: start: 20240423, end: 20240514
  40. ISATUXIMAB [Suspect]
     Active Substance: ISATUXIMAB
     Dosage: 540 MILLIGRAM, QW
     Route: 065
     Dates: start: 20240423, end: 20240514
  41. ISATUXIMAB [Suspect]
     Active Substance: ISATUXIMAB
     Dosage: 1080 MILLIGRAM, QW (540 MG, BIW)
     Route: 065
     Dates: start: 20240521, end: 20240604
  42. ISATUXIMAB [Suspect]
     Active Substance: ISATUXIMAB
     Dosage: 1080 MILLIGRAM, QW (540 MG, BIW)
     Route: 065
     Dates: start: 20240521, end: 20240604
  43. ISATUXIMAB [Suspect]
     Active Substance: ISATUXIMAB
     Dosage: 1080 MILLIGRAM, QW (540 MG, BIW)
     Dates: start: 20240521, end: 20240604
  44. ISATUXIMAB [Suspect]
     Active Substance: ISATUXIMAB
     Dosage: 1080 MILLIGRAM, QW (540 MG, BIW)
     Dates: start: 20240521, end: 20240604
  45. ISATUXIMAB [Suspect]
     Active Substance: ISATUXIMAB
     Dosage: 1080 MILLIGRAM, QW (540 MG, BIW)
     Dates: start: 20240618, end: 20240702
  46. ISATUXIMAB [Suspect]
     Active Substance: ISATUXIMAB
     Dosage: 1080 MILLIGRAM, QW (540 MG, BIW)
     Route: 065
     Dates: start: 20240618, end: 20240702
  47. ISATUXIMAB [Suspect]
     Active Substance: ISATUXIMAB
     Dosage: 1080 MILLIGRAM, QW (540 MG, BIW)
     Route: 065
     Dates: start: 20240618, end: 20240702
  48. ISATUXIMAB [Suspect]
     Active Substance: ISATUXIMAB
     Dosage: 1080 MILLIGRAM, QW (540 MG, BIW)
     Dates: start: 20240618, end: 20240702
  49. ISATUXIMAB [Suspect]
     Active Substance: ISATUXIMAB
     Dosage: 1080 MILLIGRAM, QW (540 MG, BIW)
     Route: 065
     Dates: start: 20240716, end: 20240730
  50. ISATUXIMAB [Suspect]
     Active Substance: ISATUXIMAB
     Dosage: 1080 MILLIGRAM, QW (540 MG, BIW)
     Route: 065
     Dates: start: 20240716, end: 20240730
  51. ISATUXIMAB [Suspect]
     Active Substance: ISATUXIMAB
     Dosage: 1080 MILLIGRAM, QW (540 MG, BIW)
     Dates: start: 20240716, end: 20240730
  52. ISATUXIMAB [Suspect]
     Active Substance: ISATUXIMAB
     Dosage: 1080 MILLIGRAM, QW (540 MG, BIW)
     Dates: start: 20240716, end: 20240730
  53. ISATUXIMAB [Suspect]
     Active Substance: ISATUXIMAB
     Dosage: 1080 MILLIGRAM, QW (540 MG, BIW)
     Route: 065
     Dates: start: 20240813, end: 20240827
  54. ISATUXIMAB [Suspect]
     Active Substance: ISATUXIMAB
     Dosage: 1080 MILLIGRAM, QW (540 MG, BIW)
     Route: 065
     Dates: start: 20240813, end: 20240827
  55. ISATUXIMAB [Suspect]
     Active Substance: ISATUXIMAB
     Dosage: 1080 MILLIGRAM, QW (540 MG, BIW)
     Dates: start: 20240813, end: 20240827
  56. ISATUXIMAB [Suspect]
     Active Substance: ISATUXIMAB
     Dosage: 1080 MILLIGRAM, QW (540 MG, BIW)
     Dates: start: 20240813, end: 20240827
  57. ISATUXIMAB [Suspect]
     Active Substance: ISATUXIMAB
     Dosage: 1060 MILLIGRAM, QW (530 MG, BIW)
     Dates: start: 20240910, end: 20240924
  58. ISATUXIMAB [Suspect]
     Active Substance: ISATUXIMAB
     Dosage: 1060 MILLIGRAM, QW (530 MG, BIW)
     Dates: start: 20240910, end: 20240924
  59. ISATUXIMAB [Suspect]
     Active Substance: ISATUXIMAB
     Dosage: 1060 MILLIGRAM, QW (530 MG, BIW)
     Route: 065
     Dates: start: 20240910, end: 20240924
  60. ISATUXIMAB [Suspect]
     Active Substance: ISATUXIMAB
     Dosage: 1060 MILLIGRAM, QW (530 MG, BIW)
     Route: 065
     Dates: start: 20240910, end: 20240924
  61. ISATUXIMAB [Suspect]
     Active Substance: ISATUXIMAB
     Dosage: 1080 MILLIGRAM, QW (540 MG, BIW)
     Route: 065
     Dates: start: 20241008, end: 20241022
  62. ISATUXIMAB [Suspect]
     Active Substance: ISATUXIMAB
     Dosage: 1080 MILLIGRAM, QW (540 MG, BIW)
     Route: 065
     Dates: start: 20241008, end: 20241022
  63. ISATUXIMAB [Suspect]
     Active Substance: ISATUXIMAB
     Dosage: 1080 MILLIGRAM, QW (540 MG, BIW)
     Dates: start: 20241008, end: 20241022
  64. ISATUXIMAB [Suspect]
     Active Substance: ISATUXIMAB
     Dosage: 1080 MILLIGRAM, QW (540 MG, BIW)
     Dates: start: 20241008, end: 20241022
  65. ISATUXIMAB [Suspect]
     Active Substance: ISATUXIMAB
     Dosage: 1080 MILLIGRAM, QW (540 MG, BIW)
     Route: 065
     Dates: start: 20241105, end: 20241119
  66. ISATUXIMAB [Suspect]
     Active Substance: ISATUXIMAB
     Dosage: 1080 MILLIGRAM, QW (540 MG, BIW)
     Route: 065
     Dates: start: 20241105, end: 20241119
  67. ISATUXIMAB [Suspect]
     Active Substance: ISATUXIMAB
     Dosage: 1080 MILLIGRAM, QW (540 MG, BIW)
     Dates: start: 20241105, end: 20241119
  68. ISATUXIMAB [Suspect]
     Active Substance: ISATUXIMAB
     Dosage: 1080 MILLIGRAM, QW (540 MG, BIW)
     Dates: start: 20241105, end: 20241119
  69. ISATUXIMAB [Suspect]
     Active Substance: ISATUXIMAB
     Dosage: 1080 MILLIGRAM, QW (540 MG, BIW)
     Dates: start: 20241203, end: 20241217
  70. ISATUXIMAB [Suspect]
     Active Substance: ISATUXIMAB
     Dosage: 1080 MILLIGRAM, QW (540 MG, BIW)
     Dates: start: 20241203, end: 20241217
  71. ISATUXIMAB [Suspect]
     Active Substance: ISATUXIMAB
     Dosage: 1080 MILLIGRAM, QW (540 MG, BIW)
     Route: 065
     Dates: start: 20241203, end: 20241217
  72. ISATUXIMAB [Suspect]
     Active Substance: ISATUXIMAB
     Dosage: 1080 MILLIGRAM, QW (540 MG, BIW)
     Route: 065
     Dates: start: 20241203, end: 20241217
  73. CARFILZOMIB [Suspect]
     Active Substance: CARFILZOMIB
     Indication: Plasma cell myeloma refractory
     Dosage: 32 MILLIGRAM, QD
     Route: 065
     Dates: start: 20240423, end: 20240423
  74. CARFILZOMIB [Suspect]
     Active Substance: CARFILZOMIB
     Dosage: 32 MILLIGRAM, QD
     Route: 065
     Dates: start: 20240423, end: 20240423
  75. CARFILZOMIB [Suspect]
     Active Substance: CARFILZOMIB
     Dosage: 32 MILLIGRAM, QD
     Dates: start: 20240423, end: 20240423
  76. CARFILZOMIB [Suspect]
     Active Substance: CARFILZOMIB
     Dosage: 32 MILLIGRAM, QD
     Dates: start: 20240423, end: 20240423
  77. CARFILZOMIB [Suspect]
     Active Substance: CARFILZOMIB
     Dosage: 110 MILLIGRAM, QW
     Dates: start: 20240430, end: 20240507
  78. CARFILZOMIB [Suspect]
     Active Substance: CARFILZOMIB
     Dosage: 110 MILLIGRAM, QW
     Route: 065
     Dates: start: 20240430, end: 20240507
  79. CARFILZOMIB [Suspect]
     Active Substance: CARFILZOMIB
     Dosage: 110 MILLIGRAM, QW
     Route: 065
     Dates: start: 20240430, end: 20240507
  80. CARFILZOMIB [Suspect]
     Active Substance: CARFILZOMIB
     Dosage: 110 MILLIGRAM, QW
     Dates: start: 20240430, end: 20240507
  81. CARFILZOMIB [Suspect]
     Active Substance: CARFILZOMIB
     Dosage: 110 MILLIGRAM, QW
     Dates: start: 20240521, end: 20240604
  82. CARFILZOMIB [Suspect]
     Active Substance: CARFILZOMIB
     Dosage: 110 MILLIGRAM, QW
     Dates: start: 20240521, end: 20240604
  83. CARFILZOMIB [Suspect]
     Active Substance: CARFILZOMIB
     Dosage: 110 MILLIGRAM, QW
     Route: 065
     Dates: start: 20240521, end: 20240604
  84. CARFILZOMIB [Suspect]
     Active Substance: CARFILZOMIB
     Dosage: 110 MILLIGRAM, QW
     Route: 065
     Dates: start: 20240521, end: 20240604
  85. CARFILZOMIB [Suspect]
     Active Substance: CARFILZOMIB
     Dosage: 110 MILLIGRAM, QW
     Route: 065
     Dates: start: 20240618, end: 20240702
  86. CARFILZOMIB [Suspect]
     Active Substance: CARFILZOMIB
     Dosage: 110 MILLIGRAM, QW
     Route: 065
     Dates: start: 20240618, end: 20240702
  87. CARFILZOMIB [Suspect]
     Active Substance: CARFILZOMIB
     Dosage: 110 MILLIGRAM, QW
     Dates: start: 20240618, end: 20240702
  88. CARFILZOMIB [Suspect]
     Active Substance: CARFILZOMIB
     Dosage: 110 MILLIGRAM, QW
     Dates: start: 20240618, end: 20240702
  89. CARFILZOMIB [Suspect]
     Active Substance: CARFILZOMIB
     Dosage: 110 MILLIGRAM, QW
     Route: 065
     Dates: start: 20240716, end: 20240730
  90. CARFILZOMIB [Suspect]
     Active Substance: CARFILZOMIB
     Dosage: 110 MILLIGRAM, QW
     Dates: start: 20240716, end: 20240730
  91. CARFILZOMIB [Suspect]
     Active Substance: CARFILZOMIB
     Dosage: 110 MILLIGRAM, QW
     Route: 065
     Dates: start: 20240716, end: 20240730
  92. CARFILZOMIB [Suspect]
     Active Substance: CARFILZOMIB
     Dosage: 110 MILLIGRAM, QW
     Dates: start: 20240716, end: 20240730
  93. CARFILZOMIB [Suspect]
     Active Substance: CARFILZOMIB
     Dosage: 110 MILLIGRAM, QW
     Route: 065
     Dates: start: 20240813, end: 20240827
  94. CARFILZOMIB [Suspect]
     Active Substance: CARFILZOMIB
     Dosage: 110 MILLIGRAM, QW
     Dates: start: 20240813, end: 20240827
  95. CARFILZOMIB [Suspect]
     Active Substance: CARFILZOMIB
     Dosage: 110 MILLIGRAM, QW
     Dates: start: 20240813, end: 20240827
  96. CARFILZOMIB [Suspect]
     Active Substance: CARFILZOMIB
     Dosage: 110 MILLIGRAM, QW
     Route: 065
     Dates: start: 20240813, end: 20240827
  97. CARFILZOMIB [Suspect]
     Active Substance: CARFILZOMIB
     Dosage: 110 MILLIGRAM, QW
     Dates: start: 20240910, end: 20240924
  98. CARFILZOMIB [Suspect]
     Active Substance: CARFILZOMIB
     Dosage: 110 MILLIGRAM, QW
     Route: 065
     Dates: start: 20240910, end: 20240924
  99. CARFILZOMIB [Suspect]
     Active Substance: CARFILZOMIB
     Dosage: 110 MILLIGRAM, QW
     Route: 065
     Dates: start: 20240910, end: 20240924
  100. CARFILZOMIB [Suspect]
     Active Substance: CARFILZOMIB
     Dosage: 110 MILLIGRAM, QW
     Dates: start: 20240910, end: 20240924
  101. CARFILZOMIB [Suspect]
     Active Substance: CARFILZOMIB
     Dosage: 110 MILLIGRAM, QW
     Route: 065
     Dates: start: 20241008, end: 20241022
  102. CARFILZOMIB [Suspect]
     Active Substance: CARFILZOMIB
     Dosage: 110 MILLIGRAM, QW
     Route: 065
     Dates: start: 20241008, end: 20241022
  103. CARFILZOMIB [Suspect]
     Active Substance: CARFILZOMIB
     Dosage: 110 MILLIGRAM, QW
     Dates: start: 20241008, end: 20241022
  104. CARFILZOMIB [Suspect]
     Active Substance: CARFILZOMIB
     Dosage: 110 MILLIGRAM, QW
     Dates: start: 20241008, end: 20241022
  105. CARFILZOMIB [Suspect]
     Active Substance: CARFILZOMIB
     Dosage: 108 MILLIGRAM, QW
     Dates: start: 20241008, end: 20241008
  106. CARFILZOMIB [Suspect]
     Active Substance: CARFILZOMIB
     Dosage: 108 MILLIGRAM, QW
     Route: 065
     Dates: start: 20241008, end: 20241008
  107. CARFILZOMIB [Suspect]
     Active Substance: CARFILZOMIB
     Dosage: 108 MILLIGRAM, QW
     Route: 065
     Dates: start: 20241008, end: 20241008
  108. CARFILZOMIB [Suspect]
     Active Substance: CARFILZOMIB
     Dosage: 108 MILLIGRAM, QW
     Dates: start: 20241008, end: 20241008
  109. CARFILZOMIB [Suspect]
     Active Substance: CARFILZOMIB
     Dosage: 88 MILLIGRAM, QW
     Route: 065
     Dates: start: 20241015, end: 20241015
  110. CARFILZOMIB [Suspect]
     Active Substance: CARFILZOMIB
     Dosage: 88 MILLIGRAM, QW
     Route: 065
     Dates: start: 20241015, end: 20241015
  111. CARFILZOMIB [Suspect]
     Active Substance: CARFILZOMIB
     Dosage: 88 MILLIGRAM, QW
     Dates: start: 20241015, end: 20241015
  112. CARFILZOMIB [Suspect]
     Active Substance: CARFILZOMIB
     Dosage: 88 MILLIGRAM, QW
     Dates: start: 20241015, end: 20241015
  113. CARFILZOMIB [Suspect]
     Active Substance: CARFILZOMIB
     Dosage: 88 MILLIGRAM, QW
     Dates: start: 20241105, end: 20241119
  114. CARFILZOMIB [Suspect]
     Active Substance: CARFILZOMIB
     Dosage: 88 MILLIGRAM, QW
     Dates: start: 20241105, end: 20241119
  115. CARFILZOMIB [Suspect]
     Active Substance: CARFILZOMIB
     Dosage: 88 MILLIGRAM, QW
     Route: 065
     Dates: start: 20241105, end: 20241119
  116. CARFILZOMIB [Suspect]
     Active Substance: CARFILZOMIB
     Dosage: 88 MILLIGRAM, QW
     Route: 065
     Dates: start: 20241105, end: 20241119
  117. CARFILZOMIB [Suspect]
     Active Substance: CARFILZOMIB
     Dosage: 88 MILLIGRAM, QW
     Dates: start: 20241203, end: 20241217
  118. CARFILZOMIB [Suspect]
     Active Substance: CARFILZOMIB
     Dosage: 88 MILLIGRAM, QW
     Dates: start: 20241203, end: 20241217
  119. CARFILZOMIB [Suspect]
     Active Substance: CARFILZOMIB
     Dosage: 88 MILLIGRAM, QW
     Route: 065
     Dates: start: 20241203, end: 20241217
  120. CARFILZOMIB [Suspect]
     Active Substance: CARFILZOMIB
     Dosage: 88 MILLIGRAM, QW
     Route: 065
     Dates: start: 20241203, end: 20241217
  121. RIVAROXABAN [Concomitant]
     Active Substance: RIVAROXABAN
     Indication: Venous thrombosis
  122. RIVAROXABAN [Concomitant]
     Active Substance: RIVAROXABAN
     Route: 065
  123. RIVAROXABAN [Concomitant]
     Active Substance: RIVAROXABAN
     Route: 065
  124. RIVAROXABAN [Concomitant]
     Active Substance: RIVAROXABAN
  125. OMEPRAZOLE [Concomitant]
     Active Substance: OMEPRAZOLE
     Indication: Gastrointestinal disorder
  126. OMEPRAZOLE [Concomitant]
     Active Substance: OMEPRAZOLE
     Route: 065
  127. OMEPRAZOLE [Concomitant]
     Active Substance: OMEPRAZOLE
     Route: 065
  128. OMEPRAZOLE [Concomitant]
     Active Substance: OMEPRAZOLE
  129. EZETIMIBE [Concomitant]
     Active Substance: EZETIMIBE
     Indication: Hypercholesterolaemia
  130. EZETIMIBE [Concomitant]
     Active Substance: EZETIMIBE
     Route: 065
  131. EZETIMIBE [Concomitant]
     Active Substance: EZETIMIBE
     Route: 065
  132. EZETIMIBE [Concomitant]
     Active Substance: EZETIMIBE
  133. ACETAMINOPHEN [Concomitant]
     Active Substance: ACETAMINOPHEN
     Indication: Premedication
     Dates: start: 20240423, end: 20241217
  134. ACETAMINOPHEN [Concomitant]
     Active Substance: ACETAMINOPHEN
     Route: 065
     Dates: start: 20240423, end: 20241217
  135. ACETAMINOPHEN [Concomitant]
     Active Substance: ACETAMINOPHEN
     Route: 065
     Dates: start: 20240423, end: 20241217
  136. ACETAMINOPHEN [Concomitant]
     Active Substance: ACETAMINOPHEN
     Dates: start: 20240423, end: 20241217
  137. DEXCHLORPHENIRAMINE [Concomitant]
     Active Substance: DEXCHLORPHENIRAMINE
     Indication: Premedication
     Dates: start: 20240423, end: 20241217
  138. DEXCHLORPHENIRAMINE [Concomitant]
     Active Substance: DEXCHLORPHENIRAMINE
     Route: 065
     Dates: start: 20240423, end: 20241217
  139. DEXCHLORPHENIRAMINE [Concomitant]
     Active Substance: DEXCHLORPHENIRAMINE
     Route: 065
     Dates: start: 20240423, end: 20241217
  140. DEXCHLORPHENIRAMINE [Concomitant]
     Active Substance: DEXCHLORPHENIRAMINE
     Dates: start: 20240423, end: 20241217
  141. BACTRIM [Concomitant]
     Active Substance: SULFAMETHOXAZOLE\TRIMETHOPRIM
     Indication: Premedication
     Dates: start: 20240423, end: 20241217
  142. BACTRIM [Concomitant]
     Active Substance: SULFAMETHOXAZOLE\TRIMETHOPRIM
     Indication: Prophylaxis
     Route: 065
     Dates: start: 20240423, end: 20241217
  143. BACTRIM [Concomitant]
     Active Substance: SULFAMETHOXAZOLE\TRIMETHOPRIM
     Route: 065
     Dates: start: 20240423, end: 20241217
  144. BACTRIM [Concomitant]
     Active Substance: SULFAMETHOXAZOLE\TRIMETHOPRIM
     Dates: start: 20240423, end: 20241217
  145. VALACYCLOVIR HYDROCHLORIDE [Concomitant]
     Active Substance: VALACYCLOVIR HYDROCHLORIDE
     Indication: Premedication
     Dates: start: 20240423, end: 20241217
  146. VALACYCLOVIR HYDROCHLORIDE [Concomitant]
     Active Substance: VALACYCLOVIR HYDROCHLORIDE
     Route: 065
     Dates: start: 20240423, end: 20241217
  147. VALACYCLOVIR HYDROCHLORIDE [Concomitant]
     Active Substance: VALACYCLOVIR HYDROCHLORIDE
     Route: 065
     Dates: start: 20240423, end: 20241217
  148. VALACYCLOVIR HYDROCHLORIDE [Concomitant]
     Active Substance: VALACYCLOVIR HYDROCHLORIDE
     Dates: start: 20240423, end: 20241217
  149. AMOXICILLIN [Concomitant]
     Active Substance: AMOXICILLIN
     Indication: Premedication
     Dates: start: 20240423, end: 20241217
  150. AMOXICILLIN [Concomitant]
     Active Substance: AMOXICILLIN
     Indication: Prophylaxis
     Route: 065
     Dates: start: 20240423, end: 20241217
  151. AMOXICILLIN [Concomitant]
     Active Substance: AMOXICILLIN
     Route: 065
     Dates: start: 20240423, end: 20241217
  152. AMOXICILLIN [Concomitant]
     Active Substance: AMOXICILLIN
     Dates: start: 20240423, end: 20241217
  153. OXYCONTIN [Concomitant]
     Active Substance: OXYCODONE HYDROCHLORIDE
     Indication: Musculoskeletal chest pain
  154. OXYCONTIN [Concomitant]
     Active Substance: OXYCODONE HYDROCHLORIDE
     Route: 065
  155. OXYCONTIN [Concomitant]
     Active Substance: OXYCODONE HYDROCHLORIDE
     Route: 065
  156. OXYCONTIN [Concomitant]
     Active Substance: OXYCODONE HYDROCHLORIDE
  157. OXYCODONE HYDROCHLORIDE [Concomitant]
     Active Substance: OXYCODONE HYDROCHLORIDE
     Indication: Arthralgia
  158. OXYCODONE HYDROCHLORIDE [Concomitant]
     Active Substance: OXYCODONE HYDROCHLORIDE
     Route: 065
  159. OXYCODONE HYDROCHLORIDE [Concomitant]
     Active Substance: OXYCODONE HYDROCHLORIDE
     Route: 065
  160. OXYCODONE HYDROCHLORIDE [Concomitant]
     Active Substance: OXYCODONE HYDROCHLORIDE

REACTIONS (1)
  - Plasma cell myeloma recurrent [Recovering/Resolving]

NARRATIVE: CASE EVENT DATE: 20241219
